FAERS Safety Report 16889747 (Version 2)
Quarter: 2019Q4

REPORT INFORMATION
  Report Type: Spontaneous
  Country: JP (occurrence: JP)
  Receive Date: 20191007
  Receipt Date: 20191029
  Transmission Date: 20200122
  Serious: Yes (Hospitalization, Other)
  Sender: FDA-Public Use
  Company Number: JP-PFIZER INC-2019426597

PATIENT
  Age: 79 Year
  Sex: Female
  Weight: 47 kg

DRUGS (1)
  1. DALACIN S [Suspect]
     Active Substance: CLINDAMYCIN PHOSPHATE
     Indication: INFECTION PROPHYLAXIS
     Dosage: 600 MG, 2X/DAY
     Route: 041
     Dates: start: 20190930, end: 20191001

REACTIONS (2)
  - Bradycardia [Recovered/Resolved]
  - Arrhythmia [Recovered/Resolved]

NARRATIVE: CASE EVENT DATE: 20191002
